FAERS Safety Report 5824401-X (Version None)
Quarter: 2008Q3

REPORT INFORMATION
  Report Type: 
  Country: None (occurrence: None)
  Receive Date: 20080728
  Receipt Date: 20080722
  Transmission Date: 20090109
  Serious: Yes (Death)
  Sender: FDA-Public Use
  Company Number: A0738900A

PATIENT
  Age: 78 Year
  Sex: Male

DRUGS (3)
  1. IMITREX [Suspect]
     Indication: DRUG USE FOR UNKNOWN INDICATION
     Route: 065
     Dates: end: 20061210
  2. ALEVE [Concomitant]
  3. M.V.I. [Concomitant]

REACTIONS (1)
  - DEATH [None]
